FAERS Safety Report 8780993 (Version 2)
Quarter: 2012Q4

REPORT INFORMATION
  Report Type: 
  Country: US (occurrence: US)
  Receive Date: 20120913
  Receipt Date: 20121220
  Transmission Date: 20130627
  Serious: No
  Sender: FDA-Public Use
  Company Number: US-009507513-1208USA011565

PATIENT
  Age: 28 Year
  Sex: Female
  Weight: 82.99 kg

DRUGS (1)
  1. IMPLANON [Suspect]
     Indication: CONTRACEPTION
     Dosage: 1 DF, UNK
     Route: 059
     Dates: start: 20110811, end: 20120824

REACTIONS (2)
  - Weight increased [Unknown]
  - Medical device complication [Unknown]
